FAERS Safety Report 8298971-9 (Version None)
Quarter: 2012Q2

REPORT INFORMATION
  Report Type: 
  Country: None (occurrence: None)
  Receive Date: 20120419
  Receipt Date: 20120416
  Transmission Date: 20120825
  Serious: Yes (Hospitalization, Other)
  Sender: FDA-Public Use
  Company Number: US-MERCK-1110USA00793

PATIENT
  Age: 67 Year
  Sex: Female
  Weight: 48 kg

DRUGS (4)
  1. FOSAMAX [Suspect]
     Indication: OSTEOPENIA
     Route: 048
     Dates: start: 20040601, end: 20080101
  2. ALENDRONATE SODIUM [Suspect]
     Indication: OSTEOPENIA
     Route: 048
     Dates: start: 20080101, end: 20090428
  3. DIOVAN [Concomitant]
     Route: 065
     Dates: start: 20040101, end: 20061101
  4. VERAPAMIL [Concomitant]
     Indication: HYPERTENSION
     Route: 065
     Dates: start: 20040601

REACTIONS (10)
  - ARTERIAL OCCLUSIVE DISEASE [None]
  - FRACTURE NONUNION [None]
  - CATARACT [None]
  - FALL [None]
  - CAROTID ARTERY DISEASE [None]
  - ANGIOPATHY [None]
  - BONE DENSITY ABNORMAL [None]
  - GASTROOESOPHAGEAL REFLUX DISEASE [None]
  - FEMUR FRACTURE [None]
  - ARTHRALGIA [None]
